FAERS Safety Report 9267055 (Version 2)
Quarter: 2013Q2

REPORT INFORMATION
  Report Type: Spontaneous
  Country: US (occurrence: US)
  Receive Date: 20130502
  Receipt Date: 20130606
  Transmission Date: 20140414
  Serious: No
  Sender: FDA-Public Use
  Company Number: US-PFIZER INC-2013135246

PATIENT
  Sex: Female

DRUGS (4)
  1. GABAPENTIN [Suspect]
     Indication: HERPES ZOSTER
     Dosage: 300 MG, 3X/DAY
     Dates: start: 20130224, end: 201304
  2. GABAPENTIN [Suspect]
     Dosage: 1800MG A DAY
     Dates: start: 201304, end: 201304
  3. GABAPENTIN [Suspect]
     Dosage: 900MG A DAY
     Dates: start: 201304, end: 201304
  4. GABAPENTIN [Suspect]
     Dosage: 600MG A DAY
     Dates: start: 201304

REACTIONS (7)
  - Drug ineffective [Unknown]
  - Malaise [Unknown]
  - Hypoaesthesia [Unknown]
  - Dizziness [Not Recovered/Not Resolved]
  - Discomfort [Not Recovered/Not Resolved]
  - Memory impairment [Unknown]
  - Post herpetic neuralgia [Not Recovered/Not Resolved]
